FAERS Safety Report 11841789 (Version 1)
Quarter: 2015Q4

REPORT INFORMATION
  Report Type: Spontaneous
  Country: DE (occurrence: CH)
  Receive Date: 20151216
  Receipt Date: 20151216
  Transmission Date: 20160305
  Serious: Yes (Hospitalization)
  Sender: FDA-Public Use
  Company Number: CH-FRI-1000081612

PATIENT
  Age: 83 Year
  Sex: Male

DRUGS (3)
  1. MEMANTINE ORAL SOLUTION [Suspect]
     Active Substance: MEMANTINE
     Indication: DEMENTIA
     Dosage: 30 GTT
     Route: 048
     Dates: start: 20150819, end: 20151030
  2. ASPIRIN CARDIO [Concomitant]
     Active Substance: ASPIRIN
     Indication: ACUTE MYOCARDIAL INFARCTION
     Dosage: 100 MG
     Route: 048
  3. MEMANTINE ORAL SOLUTION [Suspect]
     Active Substance: MEMANTINE
     Dates: start: 201108

REACTIONS (3)
  - Pleural effusion [Recovered/Resolved]
  - Cardiac failure [Recovered/Resolved]
  - Syncope [Recovered/Resolved]

NARRATIVE: CASE EVENT DATE: 201510
